FAERS Safety Report 24962478 (Version 2)
Quarter: 2025Q4

REPORT INFORMATION
  Report Type: Spontaneous
  Country: US (occurrence: US)
  Receive Date: 20250212
  Receipt Date: 20251110
  Transmission Date: 20260118
  Serious: No
  Sender: SANOFI AVENTIS
  Company Number: US-SA-SAC20230912001326

PATIENT
  Age: 6 Year
  Sex: Female

DRUGS (1)
  1. NEXVIAZYME [Suspect]
     Active Substance: AVALGLUCOSIDASE ALFA-NGPT
     Dosage: UNK
     Route: 065

REACTIONS (1)
  - Drug specific antibody present [Recovered/Resolved]

NARRATIVE: CASE EVENT DATE: 20250122
